FAERS Safety Report 9751898 (Version 2)
Quarter: 2014Q1

REPORT INFORMATION
  Report Type: Spontaneous
  Country: US (occurrence: US)
  Receive Date: 20131213
  Receipt Date: 20140117
  Transmission Date: 20141002
  Serious: Yes (Death, Hospitalization)
  Sender: FDA-Public Use
  Company Number: US-BRISTOL-MYERS SQUIBB COMPANY-19890839

PATIENT
  Age: 69 Year
  Sex: Male

DRUGS (9)
  1. BARACLUDE [Suspect]
     Indication: HEPATITIS B
     Route: 048
     Dates: start: 20100802, end: 201302
  2. RAMIPRIL [Concomitant]
     Route: 048
  3. LYRICA [Concomitant]
     Route: 048
  4. TRIAMTERENE [Concomitant]
     Route: 048
  5. PRILOSEC [Concomitant]
     Route: 048
  6. ASA [Concomitant]
     Route: 048
  7. VITAMIN B12 [Concomitant]
     Route: 048
  8. VITAMIN B6 [Concomitant]
     Route: 048
  9. VITAMIN D3 [Concomitant]
     Route: 048

REACTIONS (1)
  - Hepatocellular carcinoma [Fatal]
